FAERS Safety Report 8975016 (Version 1)
Quarter: 2012Q4

REPORT INFORMATION
  Report Type: Report from Study
  Country: HU (occurrence: HU)
  Receive Date: 20121220
  Receipt Date: 20121220
  Transmission Date: 20130627
  Serious: Yes (Hospitalization)
  Sender: FDA-Public Use
  Company Number: HU-UCBSA-072623

PATIENT
  Age: 54 Year
  Sex: Female
  Weight: 78 kg

DRUGS (6)
  1. VIMPAT [Suspect]
     Indication: EPILEPSY
     Route: 048
     Dates: start: 20121120, end: 20121205
  2. ALPRAZOLAM [Suspect]
     Indication: ANXIETY
     Route: 048
     Dates: start: 20121115, end: 20121205
  3. TRILEPTAL [Concomitant]
     Indication: EPILEPSY
     Route: 048
  4. LAMOLEP [Concomitant]
     Indication: EPILEPSY
     Route: 048
     Dates: start: 20120508
  5. PAROXETINE [Concomitant]
     Indication: DEPRESSION
     Route: 048
     Dates: start: 2000
  6. AMLODIPINE [Concomitant]
     Indication: HYPERTENSION
     Route: 048
     Dates: start: 2000

REACTIONS (1)
  - Somnolence [Recovered/Resolved]
